FAERS Safety Report 12820536 (Version 3)
Quarter: 2018Q1

REPORT INFORMATION
  Report Type: Report from Study
  Country: US (occurrence: US)
  Receive Date: 20161007
  Receipt Date: 20180214
  Transmission Date: 20180508
  Serious: Yes (Death, Other)
  Sender: FDA-Public Use
  Company Number: US-ROCHE-1188012

PATIENT
  Age: 51 Year
  Sex: Male
  Weight: 76.1 kg

DRUGS (4)
  1. BEVACIZUMAB. [Suspect]
     Active Substance: BEVACIZUMAB
     Indication: PROSTATE CANCER
     Dosage: OVER 30-90 MINUTES, LAST DOSE ADMINISTERED ON 03/DEC/2012
     Route: 042
     Dates: start: 20111121
  2. LENALIDOMIDE [Suspect]
     Active Substance: LENALIDOMIDE
     Indication: PROSTATE CANCER
     Dosage: LAST DOSE ADMINISTERED ON 18/NOV/2012
     Route: 048
     Dates: start: 20111121
  3. PREDNISONE. [Suspect]
     Active Substance: PREDNISONE
     Indication: PROSTATE CANCER
     Dosage: LAST DOSE ADMINISTERED ON 08/JAN/2013
     Route: 048
     Dates: start: 20111121
  4. DOCETAXEL. [Suspect]
     Active Substance: DOCETAXEL
     Indication: PROSTATE CANCER
     Dosage: OVER 60 MINUTES,  LAST DOSE ADMINISTERED ON 03/DEC/2012
     Route: 042
     Dates: start: 20111121

REACTIONS (6)
  - Anaemia [Unknown]
  - Platelet count decreased [Recovered/Resolved]
  - Diarrhoea [Unknown]
  - Prostate cancer [Fatal]
  - Neutrophil count decreased [Unknown]
  - Platelet count decreased [Unknown]

NARRATIVE: CASE EVENT DATE: 20121227
